FAERS Safety Report 9056214 (Version 1)
Quarter: 2013Q1

REPORT INFORMATION
  Report Type: Spontaneous
  Country: US (occurrence: US)
  Receive Date: 20130205
  Receipt Date: 20130205
  Transmission Date: 20140127
  Serious: Yes (Other)
  Sender: FDA-Public Use
  Company Number: US-SANOFI-AVENTIS-2013SA009497

PATIENT
  Age: 65 Year
  Sex: Male

DRUGS (1)
  1. ALLEGRA [Suspect]
     Indication: SINUSITIS
     Dates: start: 2009

REACTIONS (2)
  - Hypertension [Not Recovered/Not Resolved]
  - Sinusitis [Not Recovered/Not Resolved]
